FAERS Safety Report 6334209-7 (Version None)
Quarter: 2009Q3

REPORT INFORMATION
  Report Type: 
  Country: None (occurrence: None)
  Receive Date: 20090829
  Receipt Date: 20090804
  Transmission Date: 20100115
  Serious: No
  Sender: FDA-Public Use
  Company Number: US-ABBOTT-09P-163-0589360-00

PATIENT
  Sex: Male
  Weight: 78.088 kg

DRUGS (6)
  1. SIMCOR [Suspect]
     Indication: BLOOD CHOLESTEROL INCREASED
     Dosage: 500/20 MILLIGRAMS
     Dates: start: 20090727
  2. LOVAZA [Concomitant]
     Indication: DRUG USE FOR UNKNOWN INDICATION
  3. MVT [Concomitant]
     Indication: DRUG USE FOR UNKNOWN INDICATION
  4. MEGA PLUS PROSTATE [Concomitant]
     Indication: DRUG USE FOR UNKNOWN INDICATION
  5. DETOX POWDER [Concomitant]
     Indication: DRUG USE FOR UNKNOWN INDICATION
     Dosage: PHYSICIAN IS AWARE
  6. ANTIBIOTIC [Concomitant]
     Indication: DRUG USE FOR UNKNOWN INDICATION

REACTIONS (2)
  - FLUSHING [None]
  - TREMOR [None]
